FAERS Safety Report 14826405 (Version 3)
Quarter: 2018Q2

REPORT INFORMATION
  Report Type: Spontaneous
  Country: DE (occurrence: DE)
  Receive Date: 20180430
  Receipt Date: 20180430
  Transmission Date: 20180711
  Serious: Yes (Congenital Anomaly, Other)
  Sender: FDA-Public Use
  Company Number: PHHY2018DE068250

PATIENT
  Sex: Female

DRUGS (2)
  1. ETORICOXIB [Suspect]
     Active Substance: ETORICOXIB
     Indication: FOETAL EXPOSURE DURING PREGNANCY
     Dosage: UNK
     Route: 064
  2. DICLOFENAC [Suspect]
     Active Substance: DICLOFENAC
     Indication: FOETAL EXPOSURE DURING PREGNANCY
     Dosage: UNK
     Route: 064

REACTIONS (7)
  - Amniotic cavity infection [Unknown]
  - Pyelocaliectasis [Unknown]
  - Low birth weight baby [Unknown]
  - Pulmonary artery stenosis congenital [Unknown]
  - Premature baby [Unknown]
  - Foetal exposure during pregnancy [Unknown]
  - Atrial septal defect [Unknown]
